FAERS Safety Report 8954105 (Version 4)
Quarter: 2013Q2

REPORT INFORMATION
  Report Type: Spontaneous
  Country: JP (occurrence: JP)
  Receive Date: 20121207
  Receipt Date: 20130430
  Transmission Date: 20140414
  Serious: Yes (Hospitalization)
  Sender: FDA-Public Use
  Company Number: JP-OTSUKA-JP-2012-16994

PATIENT
  Age: 86 Year
  Sex: Female

DRUGS (10)
  1. PLETAAL [Suspect]
     Indication: SICK SINUS SYNDROME
     Dosage: 100 MG MILLIGRAM(S), BID
     Route: 048
     Dates: end: 201206
  2. PLETAAL [Suspect]
     Indication: ATRIAL FIBRILLATION
     Dosage: 100 MG MILLIGRAM(S), BID
     Route: 048
     Dates: start: 20120625
  3. PLETAAL [Suspect]
     Indication: CARDIAC FAILURE CHRONIC
  4. PLETAAL [Suspect]
     Indication: SINUS BRADYCARDIA
  5. WARFARIN [Suspect]
     Indication: ATRIAL FIBRILLATION
     Dosage: 1.5 MG MILLIGRAM(S), QD
     Route: 048
  6. WARFARIN [Suspect]
     Indication: CARDIAC FAILURE CHRONIC
  7. NITOROL [Concomitant]
     Indication: CARDIAC FAILURE CHRONIC
     Dosage: 20 MG MILLIGRAM(S), BID
     Route: 048
  8. FUROSEMIDE [Concomitant]
     Indication: CARDIAC FAILURE CHRONIC
     Dosage: 20 MG MILLIGRAM(S), QD
     Route: 048
  9. URINORM [Concomitant]
     Indication: HYPERURICAEMIA
     Dosage: 50 MG MILLIGRAM(S), QD
     Route: 048
  10. NEODOPASTON [Concomitant]
     Dosage: 10 MG MILLIGRAM(S), TID
     Route: 048

REACTIONS (4)
  - Gastrointestinal angiodysplasia haemorrhagic [Recovering/Resolving]
  - Melaena [Recovered/Resolved]
  - Anaemia [Recovering/Resolving]
  - Melaena [Recovered/Resolved]
